FAERS Safety Report 8546940 (Version 5)
Quarter: 2012Q4

REPORT INFORMATION
  Report Type: 
  Country: JP (occurrence: JP)
  Receive Date: 20120504
  Receipt Date: 20121003
  Transmission Date: 20130627
  Serious: Yes (Hospitalization)
  Sender: FDA-Public Use
  Company Number: JP-JNJFOC-20120412955

PATIENT
  Age: 32 None
  Sex: Female
  Weight: 67 kg

DRUGS (22)
  1. REMICADE [Suspect]
     Indication: COLITIS ULCERATIVE
     Route: 042
  2. REMICADE [Suspect]
     Indication: COLITIS ULCERATIVE
     Route: 042
  3. REMICADE [Suspect]
     Indication: COLITIS ULCERATIVE
     Dosage: tenth dose
     Route: 042
     Dates: start: 20120301
  4. REMICADE [Suspect]
     Indication: COLITIS ULCERATIVE
     Dosage: ninth dose
     Route: 042
     Dates: start: 20120105
  5. REMICADE [Suspect]
     Indication: COLITIS ULCERATIVE
     Dosage: 8th dose
     Route: 042
     Dates: start: 20111110
  6. REMICADE [Suspect]
     Indication: COLITIS ULCERATIVE
     Dosage: fifth dose
     Route: 042
     Dates: start: 20110803
  7. REMICADE [Suspect]
     Indication: COLITIS ULCERATIVE
     Dosage: 4th dose
     Route: 042
     Dates: start: 20101019
  8. REMICADE [Suspect]
     Indication: COLITIS ULCERATIVE
     Dosage: first dose
     Route: 042
     Dates: start: 20100712
  9. PROGRAF [Concomitant]
     Route: 065
     Dates: start: 201101, end: 201106
  10. IMURAN [Concomitant]
     Indication: COLITIS ULCERATIVE
     Dosage: 23 mg
     Route: 048
     Dates: start: 20111208, end: 20120416
  11. IMURAN [Concomitant]
     Indication: COLITIS ULCERATIVE
     Route: 048
     Dates: start: 20120417, end: 20120419
  12. IMURAN [Concomitant]
     Indication: COLITIS ULCERATIVE
     Route: 048
     Dates: start: 20120420, end: 20120422
  13. IMURAN [Concomitant]
     Indication: COLITIS ULCERATIVE
     Route: 048
     Dates: start: 20120423
  14. ASACOL [Concomitant]
     Indication: COLITIS ULCERATIVE
     Dosage: 1200 mg for one treatment
     Route: 048
  15. BIOFERMIN [Concomitant]
     Indication: COLITIS ULCERATIVE
     Dosage: total 6 g
     Route: 048
  16. MYONAL [Concomitant]
     Indication: MUSCLE TIGHTNESS
     Dosage: 150 mg
     Route: 048
  17. MUCOSTA [Concomitant]
     Indication: GASTRITIS
     Dosage: 100 mg for one treatment
     Route: 048
  18. LOXONIN [Concomitant]
     Indication: COLITIS ULCERATIVE
     Dosage: 60 mg for one treatment
     Route: 048
  19. PREDNISOLONE [Concomitant]
     Route: 065
  20. SALAZOPYRIN [Concomitant]
     Route: 065
  21. PENTASA [Concomitant]
     Route: 065
  22. PARIET [Concomitant]
     Indication: GASTRITIS
     Route: 048

REACTIONS (4)
  - Vasculitis [Recovering/Resolving]
  - Skin ulcer [Recovering/Resolving]
  - Rash [Recovering/Resolving]
  - Therapeutic response decreased [Unknown]
